FAERS Safety Report 5141470-3 (Version None)
Quarter: 2006Q4

REPORT INFORMATION
  Report Type: 
  Country: None (occurrence: None)
  Receive Date: 20061101
  Receipt Date: 20061023
  Transmission Date: 20070319
  Serious: Yes (Other)
  Sender: FDA-Public Use
  Company Number: US-JNJFOC-20040804713

PATIENT
  Sex: Male
  Weight: 70.76 kg

DRUGS (5)
  1. REMICADE [Suspect]
     Indication: CROHN'S DISEASE
     Dosage: 4-5 INFUSIONS
     Route: 042
  2. STEROID [Concomitant]
  3. AZATHIOPRINE [Concomitant]
  4. MERCAPTOPURINE [Concomitant]
  5. BUDESONIDE [Concomitant]

REACTIONS (1)
  - CENTRAL NERVOUS SYSTEM LYMPHOMA [None]
